FAERS Safety Report 9294791 (Version 1)
Quarter: 2013Q2

REPORT INFORMATION
  Report Type: Spontaneous
  Country: GB (occurrence: GB)
  Receive Date: 20130517
  Receipt Date: 20130517
  Transmission Date: 20140414
  Serious: Yes (Death)
  Sender: FDA-Public Use
  Company Number: GB-PFIZER INC-2013149122

PATIENT
  Sex: Male

DRUGS (1)
  1. DEPO-MEDRONE [Suspect]
     Route: 042

REACTIONS (2)
  - Incorrect route of drug administration [Fatal]
  - Death [Fatal]
